FAERS Safety Report 4682988-7 (Version None)
Quarter: 2005Q2

REPORT INFORMATION
  Report Type: 
  Country: None (occurrence: None)
  Receive Date: 20050602
  Receipt Date: 20050208
  Transmission Date: 20051028
  Serious: No
  Sender: FDA-Public Use
  Company Number: USA050290256

PATIENT
  Age: 39 Year
  Sex: Female

DRUGS (3)
  1. CYMBALTA [Suspect]
     Indication: DEPRESSION
     Dosage: 30 MG DAY
     Dates: start: 20050205
  2. BLOOD PRESSURE MEDICATION [Concomitant]
  3. THYROID TAB [Concomitant]

REACTIONS (3)
  - FATIGUE [None]
  - GASTROENTERITIS VIRAL [None]
  - MALAISE [None]
